FAERS Safety Report 13449961 (Version 1)
Quarter: 2017Q2

REPORT INFORMATION
  Report Type: Spontaneous
  Country: US (occurrence: US)
  Receive Date: 20170417
  Receipt Date: 20170417
  Transmission Date: 20170830
  Serious: No
  Sender: FDA-Public Use
  Company Number: US-BION-20160369

PATIENT
  Age: 69 Year
  Sex: Male
  Weight: 95.25 kg

DRUGS (6)
  1. GLYBURIDE. [Concomitant]
     Active Substance: GLYBURIDE
     Dosage: 2 DF TWICE DAILY
  2. SINBASTATIN [Concomitant]
  3. ALEVE [Suspect]
     Active Substance: NAPROXEN SODIUM
     Indication: ARTHRALGIA
     Dosage: 2 DF
     Route: 048
  4. FINASTURIDE [Concomitant]
     Dosage: 1 DF ONCE DAILY
  5. METFORMIN HDL [Concomitant]
     Dosage: 1 DF TWICE DAILY
  6. INSULIN INJECTION [Concomitant]
     Active Substance: INSULIN NOS

REACTIONS (4)
  - Drug effect incomplete [Unknown]
  - Incorrect drug administration duration [Unknown]
  - Intentional overdose [Unknown]
  - Product physical issue [Unknown]
